FAERS Safety Report 8992191 (Version 1)
Quarter: 2012Q4

REPORT INFORMATION
  Report Type: Report from Study
  Country: IT (occurrence: IT)
  Receive Date: 20121231
  Receipt Date: 20121231
  Transmission Date: 20130627
  Serious: Yes (Hospitalization)
  Sender: FDA-Public Use
  Company Number: IT-ROCHE-1175739

PATIENT
  Age: 59 Year
  Sex: Male
  Weight: 85 kg

DRUGS (6)
  1. BEVACIZUMAB [Suspect]
     Indication: BRAIN NEOPLASM MALIGNANT
     Dosage: 400mg/16ml, last dose prior to event: 30/May/2012
     Route: 042
     Dates: start: 20120208
  2. DEXAMETASON [Suspect]
     Indication: PRODUCT USED FOR UNKNOWN INDICATION
     Dosage: 88gtt
     Route: 050
     Dates: start: 2011
  3. ENALAPRIL [Concomitant]
     Dosage: 1/2 Caplet
     Route: 065
     Dates: start: 20120418
  4. AMLODIPINE [Concomitant]
     Route: 065
     Dates: start: 20120321
  5. LEVETIRACETAM [Concomitant]
     Route: 065
     Dates: start: 2010
  6. ESOMEPRAZOLE [Concomitant]
     Route: 065
     Dates: start: 2011

REACTIONS (2)
  - Ascites [Not Recovered/Not Resolved]
  - Pain [Not Recovered/Not Resolved]
